FAERS Safety Report 8138478-2 (Version None)
Quarter: 2012Q1

REPORT INFORMATION
  Report Type: 
  Country: None (occurrence: None)
  Receive Date: 20120215
  Receipt Date: 20120210
  Transmission Date: 20120608
  Serious: Yes (Other)
  Sender: FDA-Public Use
  Company Number: GR-PFIZER INC-2012036743

PATIENT
  Sex: Male

DRUGS (2)
  1. PLENDIL [Concomitant]
  2. INSPRA [Suspect]
     Indication: HYPERALDOSTERONISM
     Dosage: 12.5 MG, (HALF OF THE 25MG) DAILY
     Dates: start: 20100101

REACTIONS (1)
  - BLOOD ALKALINE PHOSPHATASE INCREASED [None]
